FAERS Safety Report 4885472-0 (Version None)
Quarter: 2005Q4

REPORT INFORMATION
  Report Type: 
  Country: None (occurrence: None)
  Receive Date: 20051216
  Receipt Date: 20050628
  Transmission Date: 20060501
  Serious: Yes (Hospitalization)
  Sender: FDA-Public Use
  Company Number: PHEH2005US07285

PATIENT
  Age: 55 Year
  Sex: Male

DRUGS (7)
  1. SANDOSTATIN [Suspect]
     Indication: OESOPHAGEAL VARICES HAEMORRHAGE
     Dosage: 50 UG, QH, INTRAVENOUS
     Route: 042
     Dates: start: 20050627
  2. PROPRANOLOL HYDROCHLORIDE [Concomitant]
  3. AVANDIA [Concomitant]
  4. LASIX [Concomitant]
  5. NIFEREX (POLYSACCHARIDE-IRON COMPLEX) [Concomitant]
  6. NEXIUM [Concomitant]
  7. HALCION [Concomitant]

REACTIONS (1)
  - HEART RATE DECREASED [None]
